FAERS Safety Report 24646377 (Version 1)
Quarter: 2024Q4

REPORT INFORMATION
  Report Type: Other
  Country: GB (occurrence: GB)
  Receive Date: 20241121
  Receipt Date: 20241121
  Transmission Date: 20250115
  Serious: Yes (Other)
  Sender: Atnahs Healthcare
  Company Number: GB-MHRA-EMIS-141167-9f8e0346-0ca7-43df-9d3f-7636dca394f3

PATIENT
  Age: 38 Year
  Sex: Female
  Weight: 87 kg

DRUGS (4)
  1. NAPROXEN [Suspect]
     Active Substance: NAPROXEN
     Indication: Product used for unknown indication
     Dosage: ONE TO BE TAKEN TWICE A DAY WITH FOOD NOT FOR LONG TERM USE
     Dates: start: 20241018, end: 20241030
  2. ESTRIOL [Concomitant]
     Active Substance: ESTRIOL
     Indication: Product used for unknown indication
     Dosage: APPLY NIGHTLY FOR 2-3 WEEKS THEN TWICE WEEKLY THEREAFTER15G
     Route: 067
     Dates: start: 20240905, end: 20241018
  3. OMEPRAZOLE [Concomitant]
     Active Substance: OMEPRAZOLE
     Indication: Product used for unknown indication
     Dosage: ONE TO BE TAKEN EACH DAY - WHILE ON NAPROXEN
     Dates: start: 20241018
  4. SERTRALINE [Concomitant]
     Active Substance: SERTRALINE HYDROCHLORIDE
     Indication: Depression
     Dosage: ONE TO BE TAKEN EACH DAY IN ADDITION TO 100MG
     Dates: start: 20241029

REACTIONS (1)
  - Suicidal ideation [Recovered/Resolved]

NARRATIVE: CASE EVENT DATE: 20241030
